FAERS Safety Report 23913574 (Version 1)
Quarter: 2024Q2

REPORT INFORMATION
  Report Type: Spontaneous
  Country: US (occurrence: US)
  Receive Date: 20240529
  Receipt Date: 20240529
  Transmission Date: 20240715
  Serious: No
  Sender: FDA-Public Use
  Company Number: US-ALMIRALL-US-2024-1185

PATIENT
  Sex: Male

DRUGS (2)
  1. KLISYRI [Suspect]
     Active Substance: TIRBANIBULIN
     Indication: Basosquamous carcinoma
     Route: 061
  2. KLISYRI [Suspect]
     Active Substance: TIRBANIBULIN
     Indication: Basosquamous carcinoma

REACTIONS (2)
  - Off label use [Unknown]
  - Application site pain [Unknown]
